FAERS Safety Report 7229227-0 (Version None)
Quarter: 2011Q1

REPORT INFORMATION
  Report Type: 
  Country: None (occurrence: None)
  Receive Date: 20110117
  Receipt Date: 20110104
  Transmission Date: 20110831
  Serious: Yes (Death)
  Sender: FDA-Public Use
  Company Number: US-ELI_LILLY_AND_COMPANY-US201101000790

PATIENT
  Age: 60 Year
  Sex: Male

DRUGS (3)
  1. PROZAC [Suspect]
     Indication: DEPRESSION
     Dosage: 30 MG, UNK
  2. WELLBUTRIN [Concomitant]
  3. PROZAC [Suspect]
     Dosage: 40 MG, UNK
     Dates: start: 20101207

REACTIONS (1)
  - COMPLETED SUICIDE [None]
